FAERS Safety Report 4693162-2 (Version None)
Quarter: 2005Q2

REPORT INFORMATION
  Report Type: 
  Country: None (occurrence: None)
  Receive Date: 20050617
  Receipt Date: 20050613
  Transmission Date: 20051028
  Serious: Yes (Hospitalization)
  Sender: FDA-Public Use
  Company Number: US-JNJFOC-20050500280

PATIENT
  Sex: Male
  Weight: 98.43 kg

DRUGS (1)
  1. DITROPAN [Suspect]
     Indication: URINARY INCONTINENCE
     Route: 049

REACTIONS (3)
  - CONFUSIONAL STATE [None]
  - DELIRIUM [None]
  - DISORIENTATION [None]
